FAERS Safety Report 5740873-3 (Version None)
Quarter: 2008Q2

REPORT INFORMATION
  Report Type: 
  Country: None (occurrence: None)
  Receive Date: 20080516
  Receipt Date: 20080513
  Transmission Date: 20081010
  Serious: Yes (Hospitalization, Other)
  Sender: FDA-Public Use
  Company Number: JP-BOEHRINGER INGELHEIM GMBH, GERMANY-2008-BP-06922NB

PATIENT
  Sex: Female
  Weight: 42.2 kg

DRUGS (7)
  1. MICARDIS [Suspect]
     Indication: HYPERTENSION
     Route: 048
     Dates: start: 20080402, end: 20080501
  2. CONIAL [Suspect]
     Route: 048
     Dates: start: 20080407, end: 20080420
  3. PLAVIX [Suspect]
     Route: 048
     Dates: start: 20080408, end: 20080428
  4. PAXIL [Suspect]
     Route: 048
     Dates: start: 20080408, end: 20080421
  5. CEPHADOL [Concomitant]
     Route: 048
     Dates: start: 20080401
  6. PARIET [Concomitant]
     Route: 048
     Dates: start: 20080401
  7. MUCOSTA [Concomitant]
     Route: 048
     Dates: start: 20080401

REACTIONS (6)
  - ANGLE CLOSURE GLAUCOMA [None]
  - FALL [None]
  - HAEMOTHORAX [None]
  - HALLUCINATION, VISUAL [None]
  - RIB FRACTURE [None]
  - SYNCOPE [None]
